FAERS Safety Report 10380341 (Version 1)
Quarter: 2014Q1

REPORT INFORMATION
  Report Type: Spontaneous
  Country: US (occurrence: None)
  Receive Date: 20140306
  Receipt Date: 20140306
  Transmission Date: 20141002
  Serious: Yes (Other)
  Sender: FDA-Public Use
  Company Number: 163-21880-13062591

PATIENT
  Age: 65 Year
  Sex: Female
  Weight: 85.7 kg

DRUGS (2)
  1. REVLIMID (LENALIDOMIDE) (25 MILLIGRAM, CAPSULES) [Suspect]
     Indication: PLASMA CELL MYELOMA
     Dosage: 25 MG, 21 IN 28 D, PO
     Route: 048
     Dates: start: 20130528
  2. DEXAMETHASONE (DEXAMETHASONE) [Suspect]
     Indication: PRODUCT USED FOR UNKNOWN INDICATION

REACTIONS (9)
  - Nausea [None]
  - Vomiting [None]
  - Hair growth abnormal [None]
  - Alopecia [None]
  - Thirst [None]
  - Nail growth abnormal [None]
  - Pollakiuria [None]
  - Arthralgia [None]
  - Back pain [None]
